FAERS Safety Report 4680039-1 (Version None)
Quarter: 2005Q2

REPORT INFORMATION
  Report Type: 
  Country: None (occurrence: None)
  Receive Date: 20050602
  Receipt Date: 20050523
  Transmission Date: 20051028
  Serious: Yes (Other)
  Sender: FDA-Public Use
  Company Number: JP-GLAXOSMITHKLINE-B0382517A

PATIENT
  Sex: Male

DRUGS (3)
  1. PAXIL [Suspect]
     Route: 048
     Dates: start: 20050519
  2. LUDIOMIL [Concomitant]
     Route: 048
  3. AMOXAN [Concomitant]
     Route: 048

REACTIONS (4)
  - MUSCULOSKELETAL STIFFNESS [None]
  - NEUROLEPTIC MALIGNANT SYNDROME [None]
  - PYREXIA [None]
  - TREMOR [None]
